FAERS Safety Report 8154985-0 (Version None)
Quarter: 2012Q1

REPORT INFORMATION
  Report Type: 
  Country: None (occurrence: None)
  Receive Date: 20120221
  Receipt Date: 20120216
  Transmission Date: 20120608
  Serious: No
  Sender: FDA-Public Use
  Company Number: PHEH2012US003990

PATIENT
  Sex: Female

DRUGS (6)
  1. METFORMIN HCL [Concomitant]
     Dosage: 1000 MG, UNK
  2. LEXAPRO [Concomitant]
     Dosage: 10 MG, DAILY
  3. SIMVASTATIN [Concomitant]
     Dosage: 20 MG,
  4. GABAPENTIN [Concomitant]
  5. DEXLANSOPRAZOLE [Concomitant]
     Dosage: 60 MG, X 2 DAILY
  6. TASIGNA [Suspect]
     Dosage: 150 MG, X 2 DAILY
     Route: 048

REACTIONS (2)
  - DIARRHOEA [None]
  - ABDOMINAL PAIN [None]
